APPROVED DRUG PRODUCT: RIFAMPIN AND ISONIAZID
Active Ingredient: ISONIAZID; RIFAMPIN
Strength: 150MG;300MG
Dosage Form/Route: CAPSULE;ORAL
Application: A065221 | Product #001
Applicant: HIKMA INTERNATIONAL PHARMACEUTICALS LLC
Approved: Jul 29, 2005 | RLD: No | RS: No | Type: DISCN